FAERS Safety Report 7583451-6 (Version None)
Quarter: 2011Q2

REPORT INFORMATION
  Report Type: 
  Country: None (occurrence: None)
  Receive Date: 20110630
  Receipt Date: 20110620
  Transmission Date: 20111010
  Serious: Yes (Hospitalization)
  Sender: FDA-Public Use
  Company Number: JP-ROCHE-745644

PATIENT
  Age: 19 Year
  Sex: Male

DRUGS (8)
  1. VALGANCICLOVIR [Suspect]
     Indication: CYTOMEGALOVIRUS INFECTION
     Route: 048
     Dates: start: 20100221, end: 20100302
  2. DIFLUCAN [Concomitant]
     Dates: start: 20100124
  3. SULFAMETHOXAZOLE [Concomitant]
     Route: 065
     Dates: start: 20100203
  4. URSO 250 [Concomitant]
     Dates: start: 20100119
  5. PREDNISOLONE [Concomitant]
     Dates: start: 20100122
  6. BONALON [Concomitant]
     Route: 048
     Dates: start: 20100122
  7. PROGRAF [Concomitant]
     Dates: start: 20100108
  8. ZOVIRAX [Concomitant]
     Dates: start: 20100111

REACTIONS (2)
  - CYSTITIS HAEMORRHAGIC [None]
  - PANCYTOPENIA [None]
